FAERS Safety Report 4758643-1 (Version None)
Quarter: 2005Q3

REPORT INFORMATION
  Report Type: 
  Country: None (occurrence: None)
  Receive Date: 20050826
  Receipt Date: 20050815
  Transmission Date: 20060218
  Serious: Yes (Other)
  Sender: FDA-Public Use
  Company Number: 2005117081

PATIENT
  Age: 25 Year
  Sex: Male
  Weight: 47 kg

DRUGS (4)
  1. VORICONAZOLE (VORICONAZOLE) [Suspect]
     Indication: ASPERGILLOSIS
     Dosage: (200 MG), ORAL
     Route: 048
     Dates: start: 20050601, end: 20050725
  2. MESALAMINE [Concomitant]
  3. SERVENT (SALMETEROL XINAFOATE) [Concomitant]
  4. MULTIVITAMIN [Concomitant]

REACTIONS (5)
  - HEADACHE [None]
  - HYPOAESTHESIA [None]
  - NAUSEA [None]
  - PHOTOSENSITIVITY REACTION [None]
  - VISUAL DISTURBANCE [None]
